FAERS Safety Report 7482532-5 (Version None)
Quarter: 2011Q2

REPORT INFORMATION
  Report Type: 
  Country: None (occurrence: None)
  Receive Date: 20110516
  Receipt Date: 20110428
  Transmission Date: 20111010
  Serious: Yes (Other)
  Sender: FDA-Public Use
  Company Number: US-BAYER-2011-019499

PATIENT
  Age: 26 Year
  Sex: Female

DRUGS (2)
  1. MIRENA [Suspect]
     Dosage: 20 ?G, UNK
     Route: 015
     Dates: start: 20110427
  2. MIRENA [Suspect]
     Indication: CONTRACEPTION
     Dosage: 20 ?G, UNK
     Route: 015
     Dates: start: 20100609, end: 20110427

REACTIONS (2)
  - DEVICE DISLOCATION [None]
  - PELVIC PAIN [None]
